FAERS Safety Report 6555929-5 (Version None)
Quarter: 2010Q1

REPORT INFORMATION
  Report Type: 
  Country: None (occurrence: None)
  Receive Date: 20100128
  Receipt Date: 20100119
  Transmission Date: 20100710
  Serious: Yes (Other)
  Sender: FDA-Public Use
  Company Number: US-JNJFOC-20091103698

PATIENT
  Sex: Female
  Weight: 77.11 kg

DRUGS (45)
  1. DURAGESIC-100 [Suspect]
     Indication: PROCEDURAL PAIN
     Route: 062
  2. DURAGESIC-100 [Suspect]
     Route: 062
  3. DURAGESIC-100 [Suspect]
     Route: 062
  4. DURAGESIC-100 [Suspect]
     Route: 062
  5. DURAGESIC-100 [Suspect]
     Route: 062
  6. DURAGESIC-100 [Suspect]
     Indication: PAIN
     Route: 062
  7. DURAGESIC-100 [Suspect]
     Route: 062
  8. DURAGESIC-100 [Suspect]
     Route: 062
  9. DURAGESIC-100 [Suspect]
     Route: 062
  10. DURAGESIC-100 [Suspect]
     Route: 062
  11. FENTANYL CITRATE [Suspect]
     Indication: PROCEDURAL PAIN
     Route: 062
  12. FENTANYL CITRATE [Suspect]
     Indication: PAIN
     Route: 062
  13. NORCO [Concomitant]
     Indication: PAIN
     Dosage: 10-325 MG ONE DAILY OR ONE THRICE A DAY AS REQUIRED (PRN)
     Route: 048
  14. THYROID TAB [Concomitant]
     Indication: THYROID DISORDER
     Route: 048
  15. METHADONE [Concomitant]
  16. DICYCLOMINE [Concomitant]
     Indication: ABDOMINAL PAIN
     Dosage: 4-6 HOURS
     Route: 065
  17. XANAX [Concomitant]
     Route: 065
  18. ZAROXOLYN [Concomitant]
     Indication: OEDEMA
     Route: 065
  19. TRIMETHOPRIM [Concomitant]
     Indication: BLADDER DISORDER
     Route: 065
  20. MALIC ACID [Concomitant]
     Indication: ENZYME SUPPLEMENTATION
  21. MELATONIN [Concomitant]
     Indication: SLEEP DISORDER
  22. LICORICE [Concomitant]
     Indication: ULCER
  23. PROZAC [Concomitant]
     Indication: SUICIDAL IDEATION
  24. PROZAC [Concomitant]
     Indication: MUSCLE DISORDER
  25. NEURONTIN [Concomitant]
     Indication: ALOPECIA
  26. NEURONTIN [Concomitant]
     Indication: AMNESIA
  27. NEURONTIN [Concomitant]
     Indication: VISION BLURRED
  28. VIOXX [Concomitant]
     Indication: INFLUENZA
  29. ZANAFLEX [Concomitant]
     Indication: MUSCLE RELAXANT THERAPY
  30. PAXIL [Concomitant]
     Indication: MUSCLE SPASMS
  31. ATIVAN [Concomitant]
     Indication: DRUG USE FOR UNKNOWN INDICATION
  32. CLARITIN [Concomitant]
     Indication: DYSPNOEA
  33. PROTON PUMP INHIBITORS [Concomitant]
     Indication: MUSCLE SPASMS
  34. MILK OF MAGNESIA TAB [Concomitant]
     Indication: DIARRHOEA
  35. CENTRUM SILVER [Concomitant]
  36. VITAMIN B COMPLEX CAP [Concomitant]
  37. PROBIOTIC [Concomitant]
  38. PECTIN [Concomitant]
  39. DIGESTIVE ENZYMES [Concomitant]
  40. FLAXSEED OIL [Concomitant]
  41. CALCIUM [Concomitant]
  42. ZINC [Concomitant]
  43. MULTI-VITAMINS [Concomitant]
  44. TOCOPHEROL CONCENTRATE CAP [Concomitant]
     Route: 065
  45. COENZYME Q10 [Concomitant]
     Route: 065

REACTIONS (27)
  - ABDOMINAL PAIN [None]
  - ABNORMAL LOSS OF WEIGHT [None]
  - BACK PAIN [None]
  - CONFUSIONAL STATE [None]
  - CONSTIPATION [None]
  - DECREASED APPETITE [None]
  - DIZZINESS [None]
  - DRUG DOSE OMISSION [None]
  - EYE DISORDER [None]
  - FATIGUE [None]
  - FEAR [None]
  - GAIT DISTURBANCE [None]
  - HEADACHE [None]
  - HEART RATE DECREASED [None]
  - HYPERHIDROSIS [None]
  - HYPERSOMNIA [None]
  - INTESTINAL FUNCTIONAL DISORDER [None]
  - MALAISE [None]
  - MEMORY IMPAIRMENT [None]
  - MENTAL IMPAIRMENT [None]
  - MUSCLE SPASMS [None]
  - MUSCULAR WEAKNESS [None]
  - NAUSEA [None]
  - PAIN [None]
  - PRODUCT QUALITY ISSUE [None]
  - SUICIDAL IDEATION [None]
  - THINKING ABNORMAL [None]
